FAERS Safety Report 7916440-X (Version None)
Quarter: 2011Q4

REPORT INFORMATION
  Report Type: 
  Country: None (occurrence: None)
  Receive Date: 20111116
  Receipt Date: 20111108
  Transmission Date: 20120403
  Serious: Yes (Hospitalization, Other)
  Sender: FDA-Public Use
  Company Number: FR-PAR PHARMACEUTICAL, INC-2011SCPR003405

PATIENT

DRUGS (5)
  1. LEVOTHYROXINE SODIUM [Concomitant]
     Indication: THYROID HORMONE REPLACEMENT THERAPY
     Dosage: UNK, UNKNOWN
     Route: 065
  2. CABERGOLINE [Suspect]
     Dosage: 1 MG/WEEK
     Route: 065
  3. CABERGOLINE [Suspect]
     Indication: PROLACTINOMA
     Dosage: 0.5 MG/WEEK
     Route: 065
  4. BROMOCRIPTINE MESYLATE [Suspect]
     Indication: PROLACTINOMA
     Dosage: 2.5 MG, / DAY
     Route: 065
  5. BROMOCRIPTINE MESYLATE [Suspect]
     Dosage: 2.5 MG/WEEK
     Route: 065

REACTIONS (3)
  - TOXICITY TO VARIOUS AGENTS [None]
  - VISUAL PATHWAY DISORDER [None]
  - VISUAL FIELD DEFECT [None]
